FAERS Safety Report 15049597 (Version 2)
Quarter: 2018Q3

REPORT INFORMATION
  Report Type: Spontaneous
  Country: JP (occurrence: JP)
  Receive Date: 20180622
  Receipt Date: 20180802
  Transmission Date: 20181010
  Serious: Yes (Hospitalization, Other)
  Sender: FDA-Public Use
  Company Number: JP-BRISTOL-MYERS SQUIBB COMPANY-BMS-2018-049425

PATIENT
  Age: 93 Year
  Sex: Female
  Weight: 45 kg

DRUGS (7)
  1. QUETIAPINE                         /01270902/ [Concomitant]
     Active Substance: QUETIAPINE FUMARATE
     Indication: DISEASE COMPLICATION
     Dosage: 12.5 MG, QD
     Route: 048
     Dates: end: 20180528
  2. FERRUM                             /00023505/ [Concomitant]
     Indication: DISEASE COMPLICATION
     Dosage: 100 MG, QD
     Route: 048
     Dates: start: 20180421, end: 20180528
  3. MUCOSTA [Concomitant]
     Active Substance: REBAMIPIDE
     Indication: DISEASE COMPLICATION
     Dosage: 100 MG, BID
     Route: 048
     Dates: start: 20180521, end: 20180528
  4. RHYTHMY [Concomitant]
     Active Substance: RILMAZAFONE HYDROCHLORIDE
     Indication: DISEASE COMPLICATION
     Dosage: 1 MG, QD
     Route: 048
     Dates: end: 20180528
  5. ELIQUIS [Suspect]
     Active Substance: APIXABAN
     Indication: DEEP VEIN THROMBOSIS
     Dosage: 2.5 MG, BID
     Route: 048
     Dates: start: 20180503, end: 20180528
  6. TAKECAB [Concomitant]
     Active Substance: VONOPRAZAN FUMURATE
     Indication: PROPHYLAXIS
     Dosage: 10 MG, QD
     Route: 048
     Dates: start: 20180421, end: 20180528
  7. CELECOX [Concomitant]
     Active Substance: CELECOXIB
     Indication: DISEASE COMPLICATION
     Dosage: 100 MG, BID
     Route: 048
     Dates: start: 20180521, end: 20180528

REACTIONS (2)
  - Gastric ulcer haemorrhage [Recovering/Resolving]
  - Gastrointestinal haemorrhage [Recovered/Resolved]

NARRATIVE: CASE EVENT DATE: 20180527
